FAERS Safety Report 15408878 (Version 3)
Quarter: 2019Q2

REPORT INFORMATION
  Report Type: Spontaneous
  Country: JP (occurrence: JP)
  Receive Date: 20180920
  Receipt Date: 20190401
  Transmission Date: 20190711
  Serious: Yes (Other)
  Sender: FDA-Public Use
  Company Number: JP-ELI_LILLY_AND_COMPANY-JP201809007702

PATIENT
  Age: 59 Year
  Sex: Female
  Weight: 45 kg

DRUGS (6)
  1. KYTRIL [Concomitant]
     Active Substance: GRANISETRON HYDROCHLORIDE
     Indication: PROPHYLAXIS
     Dosage: 3 MG
     Route: 041
     Dates: start: 20180911, end: 20180911
  2. EMEND [Concomitant]
     Active Substance: APREPITANT
     Indication: PROPHYLAXIS OF NAUSEA AND VOMITING
     Dosage: 125 MG
     Route: 048
     Dates: start: 20180911, end: 20180911
  3. CISPLATIN. [Concomitant]
     Active Substance: CISPLATIN
     Indication: OROPHARYNGEAL CANCER
     Dosage: 100 MG/M2
     Route: 041
     Dates: start: 20180911, end: 20180911
  4. ERBITUX [Suspect]
     Active Substance: CETUXIMAB
     Indication: OROPHARYNGEAL CANCER
     Dosage: UNK, UNKNOWN
     Route: 041
     Dates: start: 20180911, end: 20180911
  5. POLARAMINE [Concomitant]
     Active Substance: DEXCHLORPHENIRAMINE MALEATE
     Indication: PROPHYLAXIS
     Dosage: 5 MG
     Route: 041
     Dates: start: 20180911, end: 20180911
  6. DECADRON [DEXAMETHASONE SODIUM PHOSPHATE] [Concomitant]
     Indication: PROPHYLAXIS
     Dosage: 9.9 MG
     Route: 041
     Dates: start: 20180911, end: 20181114

REACTIONS (4)
  - Chest pain [Recovered/Resolved]
  - Bradycardia [Recovered/Resolved]
  - Sinus arrest [Unknown]
  - Blood pressure decreased [Recovered/Resolved]

NARRATIVE: CASE EVENT DATE: 20180911
